FAERS Safety Report 6937656-5 (Version None)
Quarter: 2010Q3

REPORT INFORMATION
  Report Type: 
  Country: None (occurrence: None)
  Receive Date: 20100820
  Receipt Date: 20100820
  Transmission Date: 20110219
  Serious: Yes (Other)
  Sender: FDA-Public Use
  Company Number: None

PATIENT
  Age: 58 Year
  Sex: Female
  Weight: 79.8331 kg

DRUGS (1)
  1. FENTANYL CITRATE [Suspect]
     Indication: PAIN
     Dosage: 100 MCG/H EVERY 48 HOURS TRANSDERMAL
     Route: 062
     Dates: start: 20100404, end: 20100819

REACTIONS (7)
  - APPLICATION SITE ERYTHEMA [None]
  - APPLICATION SITE VESICLES [None]
  - DRUG EFFECT DECREASED [None]
  - PAIN [None]
  - PRODUCT MEASURED POTENCY ISSUE [None]
  - PRODUCT SIZE ISSUE [None]
  - PRODUCT SUBSTITUTION ISSUE [None]
